FAERS Safety Report 8759841 (Version 1)
Quarter: 2012Q4

REPORT INFORMATION
  Report Type: 
  Country: DE (occurrence: DE)
  Receive Date: 20120829
  Receipt Date: 20120829
  Transmission Date: 20130627
  Serious: Yes (Other)
  Sender: FDA-Public Use
  Company Number: DE-TEVA-354080GER

PATIENT
  Age: 68 Year
  Sex: Male
  Weight: 80 kg

DRUGS (8)
  1. CEFTRIAXONE [Suspect]
     Route: 042
  2. PANTOPRAZOL [Concomitant]
     Route: 048
  3. CLEXANE [Concomitant]
     Route: 058
  4. ASS 100 [Concomitant]
     Indication: PERIPHERAL ARTERIAL OCCLUSIVE DISEASE
     Route: 048
  5. BISOPROLOL [Concomitant]
     Route: 048
  6. RAMIPRIL [Concomitant]
     Route: 048
  7. TRAMADOL [Concomitant]
     Route: 048
  8. MIRTAZAPIN [Concomitant]
     Route: 048

REACTIONS (1)
  - Delirium [Recovered/Resolved]
